FAERS Safety Report 12687836 (Version 3)
Quarter: 2017Q2

REPORT INFORMATION
  Report Type: Report from Study
  Country: US (occurrence: US)
  Receive Date: 20160825
  Receipt Date: 20170405
  Transmission Date: 20170830
  Serious: Yes (Hospitalization)
  Sender: FDA-Public Use
  Company Number: US-ACTELION-A-NJ2016-136648

PATIENT
  Age: 53 Year
  Sex: Female
  Weight: 95.24 kg

DRUGS (3)
  1. FLOLAN [Concomitant]
     Active Substance: EPOPROSTENOL SODIUM
  2. REMODULIN [Concomitant]
     Active Substance: TREPROSTINIL
     Route: 058
  3. OPSUMIT [Suspect]
     Active Substance: MACITENTAN
     Indication: PULMONARY ARTERIAL HYPERTENSION
     Dosage: 10 MG, QD
     Route: 048
     Dates: start: 20160516

REACTIONS (7)
  - Catheter site warmth [Unknown]
  - Catheter site erythema [Unknown]
  - Catheter site pain [Unknown]
  - Arthralgia [Unknown]
  - Catheter site swelling [Unknown]
  - Device damage [Unknown]
  - Catheter site haemorrhage [Unknown]
